FAERS Safety Report 15901387 (Version 1)
Quarter: 2019Q1

REPORT INFORMATION
  Report Type: Spontaneous
  Country: FR (occurrence: FR)
  Receive Date: 20190201
  Receipt Date: 20190201
  Transmission Date: 20190417
  Serious: Yes (Other)
  Sender: FDA-Public Use
  Company Number: FR-AVERITAS PHARMA, INC.-2018-26185

PATIENT
  Sex: Male

DRUGS (1)
  1. QUTENZA [Suspect]
     Active Substance: CAPSAICIN
     Indication: SCAR
     Dosage: 0.5 DF, UNK
     Route: 003

REACTIONS (1)
  - Syncope [Recovered/Resolved]
